FAERS Safety Report 7645067-2 (Version None)
Quarter: 2011Q3

REPORT INFORMATION
  Report Type: 
  Country: None (occurrence: None)
  Receive Date: 20110729
  Receipt Date: 20110722
  Transmission Date: 20111222
  Serious: Yes (Hospitalization, Other)
  Sender: FDA-Public Use
  Company Number: US-BAYER-201028669NA

PATIENT
  Age: 39 Year
  Sex: Female
  Weight: 132 kg

DRUGS (5)
  1. YASMIN [Suspect]
     Route: 048
  2. WOMEN+#8217;S ONE A DAY VITAMIN [Concomitant]
  3. TYLENOL-500 [Concomitant]
  4. IBUPROFEN [Concomitant]
     Indication: PAIN IN EXTREMITY
  5. CALCIUM CARBONATE [Concomitant]

REACTIONS (3)
  - DEEP VEIN THROMBOSIS [None]
  - GALLBLADDER DISORDER [None]
  - THROMBOSIS [None]
